FAERS Safety Report 4616861-7 (Version None)
Quarter: 2005Q1

REPORT INFORMATION
  Report Type: 
  Country: None (occurrence: None)
  Receive Date: 20050321
  Receipt Date: 20050307
  Transmission Date: 20050727
  Serious: Yes (Disabling)
  Sender: FDA-Public Use
  Company Number: 2005039851

PATIENT
  Age: 55 Year
  Sex: Male

DRUGS (1)
  1. ZOLOFT [Suspect]
     Indication: POST-TRAUMATIC STRESS DISORDER
     Dosage: 100 MG (50 MG, 2 IN 1 D) ORAL
     Route: 048
     Dates: start: 20020201, end: 20041025

REACTIONS (11)
  - AFFECTIVE DISORDER [None]
  - AGGRESSION [None]
  - ANORGASMIA [None]
  - ANXIETY [None]
  - DEPRESSION [None]
  - HEPATOMEGALY [None]
  - LIBIDO DECREASED [None]
  - NIGHTMARE [None]
  - SLEEP DISORDER [None]
  - SUICIDAL IDEATION [None]
  - WEIGHT INCREASED [None]
